FAERS Safety Report 9608708 (Version 1)
Quarter: 2013Q4

REPORT INFORMATION
  Report Type: Spontaneous
  Country: GB (occurrence: None)
  Receive Date: 20131007
  Receipt Date: 20131007
  Transmission Date: 20140711
  Serious: Yes (Other)
  Sender: FDA-Public Use
  Company Number: AUR-APL-2013-08131

PATIENT
  Age: 52 Year
  Sex: Male

DRUGS (5)
  1. FLUOXETINE [Suspect]
     Indication: DEPRESSION
     Route: 048
     Dates: start: 201307, end: 20130905
  2. LANSOPRAZOLE (LANSOPRAZOLE) [Concomitant]
  3. LAXIDO (ELECTROLYES NOS W/MACROGOL) [Concomitant]
  4. LORAZEPAM (LORAZEPAM) [Concomitant]
  5. MIRTAZAPINE (MIRTAZAPIINE) [Concomitant]

REACTIONS (2)
  - Haematoma [None]
  - Haemorrhagic stroke [None]
